FAERS Safety Report 18587427 (Version 1)
Quarter: 2020Q4

REPORT INFORMATION
  Report Type: Spontaneous
  Country: CN (occurrence: CN)
  Receive Date: 20201207
  Receipt Date: 20201207
  Transmission Date: 20210114
  Serious: Yes (Other)
  Sender: FDA-Public Use
  Company Number: CN-INCYTE CORPORATION-2020IN012132

PATIENT

DRUGS (2)
  1. JAKAVI [Suspect]
     Active Substance: RUXOLITINIB
     Indication: MYELOFIBROSIS
     Dosage: 4 DF, BID (4 TABLETS EVERY DAY AND NIGHT)
     Route: 048
     Dates: start: 202004
  2. SODIUM BICARBONATE. [Concomitant]
     Active Substance: SODIUM BICARBONATE
     Indication: GASTRITIS PROPHYLAXIS
     Dosage: 2 DF, TID
     Route: 048

REACTIONS (4)
  - Infection [Recovering/Resolving]
  - Inflammation [Recovering/Resolving]
  - Colitis ulcerative [Recovering/Resolving]
  - Diarrhoea [Recovering/Resolving]

NARRATIVE: CASE EVENT DATE: 20200902
